FAERS Safety Report 4779966-6 (Version None)
Quarter: 2005Q3

REPORT INFORMATION
  Report Type: 
  Country: None (occurrence: None)
  Receive Date: 20050927
  Receipt Date: 20050920
  Transmission Date: 20060218
  Serious: Yes (Hospitalization)
  Sender: FDA-Public Use
  Company Number: FR-GLAXOSMITHKLINE-B0394691A

PATIENT
  Age: 79 Year
  Sex: Female

DRUGS (12)
  1. AUGMENTIN [Suspect]
     Dosage: 1G THREE TIMES PER DAY
     Route: 048
     Dates: start: 20050801, end: 20050809
  2. LOVENOX [Suspect]
     Dosage: 1UNIT PER DAY
     Route: 058
     Dates: start: 20050801, end: 20050809
  3. PAROXETINE [Concomitant]
     Route: 065
  4. ALLOPURINOL [Concomitant]
     Route: 065
  5. INIPOMP [Concomitant]
     Dosage: 1UNIT PER DAY
     Route: 048
     Dates: start: 20050806, end: 20050809
  6. CORTANCYL [Concomitant]
     Indication: RHEUMATOID ARTHRITIS
     Route: 065
  7. METHOTREXATE [Concomitant]
     Indication: RHEUMATOID ARTHRITIS
     Route: 065
  8. ATACAND [Concomitant]
     Route: 065
  9. LORAZEPAM [Concomitant]
     Route: 065
  10. SOTALOL HCL [Concomitant]
     Route: 065
  11. NOCTRAN [Concomitant]
     Route: 065
  12. DOLIPRANE [Concomitant]
     Route: 065

REACTIONS (3)
  - ECCHYMOSIS [None]
  - HAEMORRHAGIC DISORDER [None]
  - THROMBOCYTOPENIA [None]
